FAERS Safety Report 8358241 (Version 9)
Quarter: 2015Q1

REPORT INFORMATION
  Report Type: Report from Study
  Country: CA (occurrence: CA)
  Receive Date: 20120127
  Receipt Date: 20150312
  Transmission Date: 20150721
  Serious: Yes (Other)
  Sender: FDA-Public Use
  Company Number: CA-ROCHE-790221

PATIENT
  Age: 52 Year
  Sex: Male
  Weight: 78.2 kg

DRUGS (20)
  1. RITUXAN [Suspect]
     Active Substance: RITUXIMAB
     Indication: SJOGREN^S SYNDROME
     Dosage: FREQUENCY: DAY 1 AND DAY 15, LAST DOSE ADMINISTER ON 30/JUL/2013.
     Route: 042
  2. FOLIC ACID. [Concomitant]
     Active Substance: FOLIC ACID
  3. DIOVAN [Concomitant]
     Active Substance: VALSARTAN
  4. DIPHENHYDRAMINE HYDROCHLORIDE. [Concomitant]
     Active Substance: DIPHENHYDRAMINE HYDROCHLORIDE
     Indication: PREMEDICATION
     Dosage: DOSE ONCE
     Route: 048
     Dates: start: 20110131, end: 20110131
  5. DIPHENHYDRAMINE HYDROCHLORIDE. [Concomitant]
     Active Substance: DIPHENHYDRAMINE HYDROCHLORIDE
     Route: 048
     Dates: start: 20090227, end: 20140423
  6. PREDNISOLON [Concomitant]
     Active Substance: PREDNISOLONE
  7. ACETAMINOPHEN. [Concomitant]
     Active Substance: ACETAMINOPHEN
     Route: 048
  8. ACETAMINOPHEN. [Concomitant]
     Active Substance: ACETAMINOPHEN
     Route: 048
     Dates: start: 20090227, end: 20141020
  9. CELEBREX [Concomitant]
     Active Substance: CELECOXIB
  10. METHYLPREDNISOLONE. [Concomitant]
     Active Substance: METHYLPREDNISOLONE
     Route: 042
     Dates: start: 20090227
  11. ACETAMINOPHEN. [Concomitant]
     Active Substance: ACETAMINOPHEN
     Indication: PREMEDICATION
     Dosage: ONCE
     Route: 048
     Dates: start: 20110131, end: 20110131
  12. ACETAMINOPHEN. [Concomitant]
     Active Substance: ACETAMINOPHEN
     Route: 048
  13. METHYLPREDNISOLONE. [Concomitant]
     Active Substance: METHYLPREDNISOLONE
     Dosage: ONCE
     Route: 042
     Dates: start: 20110131, end: 20110131
  14. METHYLPREDNISOLONE. [Concomitant]
     Active Substance: METHYLPREDNISOLONE
     Route: 042
     Dates: start: 20091126
  15. HYDROMORPHONE [Concomitant]
     Active Substance: HYDROMORPHONE
  16. RITUXAN [Suspect]
     Active Substance: RITUXIMAB
     Route: 042
  17. DIPHENHYDRAMINE HYDROCHLORIDE. [Concomitant]
     Active Substance: DIPHENHYDRAMINE HYDROCHLORIDE
     Route: 048
  18. DIPHENHYDRAMINE HYDROCHLORIDE. [Concomitant]
     Active Substance: DIPHENHYDRAMINE HYDROCHLORIDE
     Route: 048
  19. PLAQUENIL [Concomitant]
     Active Substance: HYDROXYCHLOROQUINE SULFATE
  20. NORVASC [Concomitant]
     Active Substance: AMLODIPINE BESYLATE

REACTIONS (8)
  - Neuralgia [Unknown]
  - Infusion related reaction [Unknown]
  - Off label use [Unknown]
  - Blood pressure increased [Unknown]
  - Skin cancer [Not Recovered/Not Resolved]
  - Vein disorder [Unknown]
  - Arthritis [Unknown]
  - Weight increased [Unknown]

NARRATIVE: CASE EVENT DATE: 201104
